FAERS Safety Report 6992964-7 (Version None)
Quarter: 2010Q3

REPORT INFORMATION
  Report Type: 
  Country: None (occurrence: None)
  Receive Date: 20100917
  Receipt Date: 20100407
  Transmission Date: 20110219
  Serious: Yes (Hospitalization)
  Sender: FDA-Public Use
  Company Number: US-ASTRAZENECA-2010SE15171

PATIENT
  Age: 67 Year
  Sex: Female

DRUGS (2)
  1. SEROQUEL [Suspect]
     Indication: BIPOLAR DISORDER
     Route: 048
     Dates: start: 20090401, end: 20090101
  2. SEROQUEL [Suspect]
     Route: 048
     Dates: start: 20090101

REACTIONS (5)
  - ANXIETY [None]
  - DEPRESSION [None]
  - DRUG DOSE OMISSION [None]
  - NAUSEA [None]
  - VOMITING [None]
